FAERS Safety Report 7767999-7 (Version None)
Quarter: 2011Q3

REPORT INFORMATION
  Report Type: 
  Country: None (occurrence: None)
  Receive Date: 20110922
  Receipt Date: 20110713
  Transmission Date: 20111222
  Serious: No
  Sender: FDA-Public Use
  Company Number: US-ASTRAZENECA-2011SE42178

PATIENT
  Age: 14863 Day
  Sex: Female
  Weight: 92.1 kg

DRUGS (7)
  1. FIOROCET [Concomitant]
     Indication: MIGRAINE
  2. SEROQUEL XR [Suspect]
     Indication: DEPRESSION
     Route: 048
     Dates: start: 20100101
  3. VALIUM [Concomitant]
  4. ULTRAM [Concomitant]
  5. TRAZODONE HYDROCHLORIDE [Concomitant]
  6. HYDROCODONE [Concomitant]
  7. PAXIL [Concomitant]

REACTIONS (6)
  - NAUSEA [None]
  - THROAT TIGHTNESS [None]
  - VAGINAL INFECTION [None]
  - SENSATION OF FOREIGN BODY [None]
  - URINARY TRACT INFECTION [None]
  - DYSPEPSIA [None]
